FAERS Safety Report 4785766-3 (Version None)
Quarter: 2005Q4

REPORT INFORMATION
  Report Type: 
  Country: None (occurrence: None)
  Receive Date: 20051003
  Receipt Date: 20050826
  Transmission Date: 20060501
  Serious: Yes (Other)
  Sender: FDA-Public Use
  Company Number: US-MERCK-0508USA04402

PATIENT
  Age: 10 Year
  Sex: Female
  Weight: 42 kg

DRUGS (4)
  1. SINGULAIR [Suspect]
     Indication: ASTHMA
     Route: 048
     Dates: start: 20050726, end: 20050812
  2. BUSPAR [Concomitant]
     Route: 065
  3. QVAR 40 [Concomitant]
     Indication: ASTHMA
     Route: 065
     Dates: end: 20050812
  4. ALBUTEROL [Concomitant]
     Route: 065

REACTIONS (2)
  - HYPERSENSITIVITY [None]
  - PHARYNX DISCOMFORT [None]
